FAERS Safety Report 8192897-7 (Version None)
Quarter: 2012Q1

REPORT INFORMATION
  Report Type: 
  Country: None (occurrence: None)
  Receive Date: 20120308
  Receipt Date: 20120302
  Transmission Date: 20120608
  Serious: Yes (Other)
  Sender: FDA-Public Use
  Company Number: US-AMGEN-USASP2012014025

PATIENT
  Sex: Female

DRUGS (1)
  1. PROLIA [Suspect]
     Indication: OSTEOPOROSIS POSTMENOPAUSAL
     Dosage: 60 MG, Q6MO
     Dates: start: 20110801

REACTIONS (8)
  - BLISTER [None]
  - NAUSEA [None]
  - PAIN IN EXTREMITY [None]
  - DIARRHOEA [None]
  - CONTUSION [None]
  - OPEN WOUND [None]
  - SURGERY [None]
  - LIMB INJURY [None]
